FAERS Safety Report 17371485 (Version 1)
Quarter: 2020Q1

REPORT INFORMATION
  Report Type: Spontaneous
  Country: US (occurrence: US)
  Receive Date: 20200205
  Receipt Date: 20200205
  Transmission Date: 20200409
  Serious: No
  Sender: FDA-Public Use
  Company Number: US-AMGEN-USASP2020017402

PATIENT
  Age: 22 Year
  Sex: Female

DRUGS (2)
  1. EPOETIN ALFA [Suspect]
     Active Substance: ERYTHROPOIETIN
     Indication: BLOOD LOSS ANAEMIA
     Dosage: UNK UNK, QOD (100 U/KG)
     Route: 058
  2. IRON DEXTRAN [Concomitant]
     Active Substance: IRON DEXTRAN
     Indication: BLOOD LOSS ANAEMIA
     Dosage: UNK
     Route: 042

REACTIONS (1)
  - Off label use [Unknown]
